FAERS Safety Report 11760581 (Version 3)
Quarter: 2016Q1

REPORT INFORMATION
  Report Type: Spontaneous
  Country: US (occurrence: US)
  Receive Date: 20151120
  Receipt Date: 20160201
  Transmission Date: 20160525
  Serious: Yes (Hospitalization)
  Sender: FDA-Public Use
  Company Number: US-JNJFOC-20151117548

PATIENT
  Age: 66 Year
  Sex: Female

DRUGS (6)
  1. ASPIRIN. [Suspect]
     Active Substance: ASPIRIN
     Indication: ANTICOAGULANT THERAPY
     Route: 065
  2. XARELTO [Suspect]
     Active Substance: RIVAROXABAN
     Indication: KNEE ARTHROPLASTY
     Route: 048
     Dates: start: 20131101, end: 20131129
  3. ZETIA [Concomitant]
     Active Substance: EZETIMIBE
     Indication: PRODUCT USED FOR UNKNOWN INDICATION
  4. PROVENTIL [Concomitant]
     Active Substance: ALBUTEROL
     Indication: PRODUCT USED FOR UNKNOWN INDICATION
  5. CITALOPRAM [Concomitant]
     Active Substance: CITALOPRAM HYDROBROMIDE
     Indication: PRODUCT USED FOR UNKNOWN INDICATION
  6. XARELTO [Suspect]
     Active Substance: RIVAROXABAN
     Indication: THROMBOSIS PROPHYLAXIS
     Route: 048
     Dates: start: 20131101, end: 20131129

REACTIONS (5)
  - Haematuria [Recovering/Resolving]
  - Autoimmune haemolytic anaemia [Recovering/Resolving]
  - Internal haemorrhage [Unknown]
  - Acute kidney injury [Recovering/Resolving]
  - Urinary tract infection [Recovering/Resolving]

NARRATIVE: CASE EVENT DATE: 20131205
